FAERS Safety Report 5370312-6 (Version None)
Quarter: 2007Q2

REPORT INFORMATION
  Report Type: 
  Country: None (occurrence: None)
  Receive Date: 20070626
  Receipt Date: 20070615
  Transmission Date: 20071010
  Serious: Yes (Hospitalization)
  Sender: FDA-Public Use
  Company Number: JP-ROCHE-474368

PATIENT
  Age: 47 Year
  Sex: Male
  Weight: 52.5 kg

DRUGS (2)
  1. INTERFERON ALFA-2A [Suspect]
     Dosage: REPORTED THAT THE ADMINSTERATION OF INTERFERON ALFA-2A (9,000,000 UNITS) WAS STARTED. REPORTED AS D+
     Route: 065
  2. INTERFERON ALFA-2A [Suspect]
     Dosage: REPORTED THAT THE ADMINSTERATION OF INTERFERON ALFA-2A (9,000,000 UNITS) WAS STARTED. ADMINSTERATIO+
     Route: 065

REACTIONS (1)
  - ADDISON'S DISEASE [None]
